FAERS Safety Report 12083423 (Version 1)
Quarter: 2016Q1

REPORT INFORMATION
  Report Type: Spontaneous
  Country: US (occurrence: None)
  Receive Date: 20160216
  Receipt Date: 20160216
  Transmission Date: 20160526
  Serious: No
  Sender: FDA-Public Use
  Company Number: None

PATIENT
  Age: 63 Year
  Sex: Male

DRUGS (3)
  1. TRAMADOL. [Suspect]
     Active Substance: TRAMADOL
     Indication: INSOMNIA
     Dosage: 180 TID ORAL
     Route: 048
     Dates: start: 20160127, end: 20160213
  2. TRAMADOL. [Suspect]
     Active Substance: TRAMADOL
     Indication: PAIN
     Dosage: 180 TID ORAL
     Route: 048
     Dates: start: 20160127, end: 20160213
  3. TRAMADOL. [Suspect]
     Active Substance: TRAMADOL
     Indication: RESTLESS LEGS SYNDROME
     Dosage: 180 TID ORAL
     Route: 048
     Dates: start: 20160127, end: 20160213

REACTIONS (4)
  - Hypersensitivity [None]
  - Tachyphrenia [None]
  - Drug ineffective [None]
  - Restlessness [None]

NARRATIVE: CASE EVENT DATE: 20160213
